FAERS Safety Report 7551276-3 (Version None)
Quarter: 2011Q2

REPORT INFORMATION
  Report Type: 
  Country: None (occurrence: None)
  Receive Date: 20110616
  Receipt Date: 20110612
  Transmission Date: 20111010
  Serious: Yes (Death, Other)
  Sender: FDA-Public Use
  Company Number: PHHY2011CZ52180

PATIENT
  Sex: Female

DRUGS (3)
  1. ZOMETA [Suspect]
     Dosage: UNK
     Dates: start: 20070801
  2. NSAID'S [Concomitant]
     Dosage: UNK
  3. ANODYNE [Concomitant]

REACTIONS (3)
  - METASTASES TO BONE [None]
  - BONE DISORDER [None]
  - DEATH [None]
